FAERS Safety Report 4444734-1 (Version None)
Quarter: 2004Q3

REPORT INFORMATION
  Report Type: 
  Country: None (occurrence: None)
  Receive Date: 20040903
  Receipt Date: 20040823
  Transmission Date: 20050211
  Serious: Yes (Hospitalization)
  Sender: FDA-Public Use
  Company Number: 2004AP04045

PATIENT
  Age: 60 Year
  Sex: Male

DRUGS (5)
  1. XYLOCAINE [Suspect]
     Indication: LOCAL ANAESTHESIA
     Dosage: 30 MG DAILY
     Dates: start: 20040621, end: 20040621
  2. FLUOROURACIL [Suspect]
     Indication: OESOPHAGEAL CARCINOMA
     Dosage: 12 ML DAILY IVD
     Route: 041
     Dates: start: 20040531, end: 20040531
  3. FLUOROURACIL [Suspect]
     Indication: OESOPHAGEAL CARCINOMA
     Dosage: 12 ML DAILY IVD
     Route: 041
     Dates: start: 20040607, end: 20040611
  4. CISPLATIN [Concomitant]
  5. SOLU-CORTEF [Concomitant]

REACTIONS (5)
  - ANGIONEUROTIC OEDEMA [None]
  - DRUG ERUPTION [None]
  - DRUG HYPERSENSITIVITY [None]
  - PALLOR [None]
  - SKIN TEST POSITIVE [None]
